FAERS Safety Report 22530577 (Version 2)
Quarter: 2023Q2

REPORT INFORMATION
  Report Type: Spontaneous
  Country: US (occurrence: US)
  Receive Date: 20230607
  Receipt Date: 20230608
  Transmission Date: 20230722
  Serious: Yes (Death, Life-Threatening, Hospitalization, Other)
  Sender: FDA-Public Use
  Company Number: US-PFIZER INC-202300208560

PATIENT
  Age: 60 Day

DRUGS (10)
  1. LORAZEPAM [Suspect]
     Active Substance: LORAZEPAM
     Indication: Partial seizures
     Dosage: 0.1 MG/KG
     Route: 042
  2. LEVETIRACETAM [Suspect]
     Active Substance: LEVETIRACETAM
     Indication: Partial seizures
     Dosage: 60 MG/KG
     Route: 042
  3. LEVETIRACETAM [Suspect]
     Active Substance: LEVETIRACETAM
     Dosage: 30 MG/KG/DOSE, 2X/DAY
     Route: 042
  4. FOSPHENYTOIN SODIUM [Suspect]
     Active Substance: FOSPHENYTOIN SODIUM
     Indication: Partial seizures
     Dosage: 20 MG PES/KG
     Route: 042
  5. FOSPHENYTOIN SODIUM [Suspect]
     Active Substance: FOSPHENYTOIN SODIUM
     Dosage: 10 MG PES/KG
     Route: 042
  6. MIDAZOLAM [Suspect]
     Active Substance: MIDAZOLAM
     Indication: Partial seizures
     Dosage: 0.1 MG/KG/HR TITRATED BY 0.1 MG/KG/HR
  7. MIDAZOLAM [Suspect]
     Active Substance: MIDAZOLAM
     Dosage: 1 MG/KG/HR (MAXIMUM)
  8. PHENOBARBITAL [Suspect]
     Active Substance: PHENOBARBITAL
     Indication: Status epilepticus
     Dosage: 20 MG/KG
  9. PENTOBARBITAL [Suspect]
     Active Substance: PENTOBARBITAL
     Indication: Partial seizures
     Dosage: 0.5 MG/KG/HR TITRATED BY 0.5 MG/KG/HR
  10. PENTOBARBITAL [Suspect]
     Active Substance: PENTOBARBITAL
     Dosage: 1.5 MG/KG/HR (MAXIMUM)

REACTIONS (1)
  - Drug ineffective [Fatal]
